FAERS Safety Report 8612479-X (Version None)
Quarter: 2012Q3

REPORT INFORMATION
  Report Type: 
  Country: None (occurrence: None)
  Receive Date: 20120822
  Receipt Date: 20120813
  Transmission Date: 20120928
  Serious: Yes (Hospitalization, Other)
  Sender: FDA-Public Use
  Company Number: US-ASTRAZENECA-2011SE18267

PATIENT
  Age: 60 Year
  Sex: Male
  Weight: 95.5 kg

DRUGS (8)
  1. SYMBICORT [Suspect]
     Indication: CHRONIC OBSTRUCTIVE PULMONARY DISEASE
     Dosage: 160/4.5 BID
     Route: 055
  2. SYMBICORT [Suspect]
     Indication: EMPHYSEMA
     Dosage: 160/4.5 BID
     Route: 055
  3. OXYGEN [Concomitant]
     Dosage: 2 L WHILE AT REST, 3 L WITH ACTIVITY
     Route: 045
  4. IPRATROPIUM BROMIDE [Concomitant]
     Dosage: 3 ML EVERY 4-6 HOURS AS NEEDED
     Route: 055
  5. PROAIR HFA [Concomitant]
  6. LISINOPRIL [Concomitant]
     Route: 048
  7. ALBUTEROL [Concomitant]
     Dosage: 3 ML EVERY 4-6 HOURS AS NEEDED
     Route: 055
  8. SPIRIVA [Concomitant]
     Route: 055

REACTIONS (23)
  - HEPATITIS [None]
  - CHEST PAIN [None]
  - DENTAL CARIES [None]
  - CHOLECYSTITIS ACUTE [None]
  - INTENTIONAL DRUG MISUSE [None]
  - HYPERHIDROSIS [None]
  - ONYCHOMYCOSIS [None]
  - DYSPNOEA EXERTIONAL [None]
  - CHRONIC OBSTRUCTIVE PULMONARY DISEASE [None]
  - UPPER RESPIRATORY TRACT INFECTION [None]
  - TYPE 2 DIABETES MELLITUS [None]
  - MALAISE [None]
  - DYSPNOEA [None]
  - HYPERTENSION [None]
  - COUGH [None]
  - DRUG DOSE OMISSION [None]
  - LEUKOCYTOSIS [None]
  - DECREASED APPETITE [None]
  - CHOLELITHIASIS [None]
  - CONDITION AGGRAVATED [None]
  - PYREXIA [None]
  - XANTHELASMA [None]
  - MUSCLE SPASMS [None]
